FAERS Safety Report 16003831 (Version 1)
Quarter: 2019Q1

REPORT INFORMATION
  Report Type: Spontaneous
  Country: FR (occurrence: FR)
  Receive Date: 20190226
  Receipt Date: 20190226
  Transmission Date: 20190418
  Serious: Yes (Other)
  Sender: FDA-Public Use
  Company Number: FR-ORION CORPORATION ORION PHARMA-19_00005647

PATIENT
  Age: 72 Year
  Sex: Female
  Weight: 65 kg

DRUGS (5)
  1. PERINDOPRIL [Suspect]
     Active Substance: PERINDOPRIL
     Indication: HYPERTENSION
     Route: 048
     Dates: start: 201206
  2. IMETH [Suspect]
     Active Substance: METHOTREXATE SODIUM
     Indication: RHEUMATOID ARTHRITIS
     Route: 048
     Dates: start: 1995
  3. PREDNISOLONE. [Concomitant]
     Active Substance: PREDNISOLONE
     Route: 065
     Dates: start: 2013, end: 201710
  4. SPECIAFOLDINE [Concomitant]
     Active Substance: FOLIC ACID
     Route: 065
     Dates: start: 20150115
  5. INDAPAMIDE. [Concomitant]
     Active Substance: INDAPAMIDE
     Route: 065
     Dates: start: 2013

REACTIONS (1)
  - Eosinophilia [Not Recovered/Not Resolved]

NARRATIVE: CASE EVENT DATE: 20130718
